FAERS Safety Report 21967745 (Version 1)
Quarter: 2023Q1

REPORT INFORMATION
  Report Type: Spontaneous
  Country: FR (occurrence: FR)
  Receive Date: 20230208
  Receipt Date: 20230208
  Transmission Date: 20230417
  Serious: Yes (Hospitalization, Other)
  Sender: FDA-Public Use
  Company Number: None

PATIENT
  Age: 59 Year
  Sex: Male
  Weight: 80 kg

DRUGS (5)
  1. YERVOY [Suspect]
     Active Substance: IPILIMUMAB
     Indication: Metastatic malignant melanoma
     Dates: start: 20221027, end: 20221229
  2. OPDIVO [Suspect]
     Active Substance: NIVOLUMAB
     Indication: Metastatic malignant melanoma
     Dates: start: 20191003, end: 20191127
  3. OPDIVO [Suspect]
     Active Substance: NIVOLUMAB
     Dates: start: 20191211, end: 20201022
  4. OPDIVO [Suspect]
     Active Substance: NIVOLUMAB
     Dates: start: 20220602, end: 20220922
  5. OPDIVO [Suspect]
     Active Substance: NIVOLUMAB
     Dates: start: 20221027, end: 20221229

REACTIONS (2)
  - Colitis [Recovering/Resolving]
  - Lymphocytic hypophysitis [Recovering/Resolving]

NARRATIVE: CASE EVENT DATE: 20221222
